FAERS Safety Report 18494024 (Version 2)
Quarter: 2022Q1

REPORT INFORMATION
  Report Type: Spontaneous
  Country: US (occurrence: US)
  Receive Date: 20201112
  Receipt Date: 20220209
  Transmission Date: 20220423
  Serious: Yes (Hospitalization)
  Sender: FDA-Public Use
  Company Number: US-GW PHARMA-202010USGW03425

PATIENT

DRUGS (3)
  1. EPIDIOLEX [Suspect]
     Active Substance: CANNABIDIOL
     Indication: Epilepsy
     Dosage: 6.44 MG/KG/DAY, 200 MILLIGRAM, BID
     Route: 048
     Dates: start: 201901
  2. VIGABATRIN [Concomitant]
     Active Substance: VIGABATRIN
     Indication: Product used for unknown indication
     Dosage: DOSE: 500 MG
     Route: 065
     Dates: start: 20200402, end: 2020
  3. VIGABATRIN [Concomitant]
     Active Substance: VIGABATRIN
     Dosage: 2000 MILLIGRAM, BID
     Route: 065
     Dates: start: 2020

REACTIONS (3)
  - Malnutrition [Unknown]
  - Product dose omission issue [Unknown]
  - Product supply issue [Unknown]

NARRATIVE: CASE EVENT DATE: 20201005
